FAERS Safety Report 5000496-0 (Version None)
Quarter: 2006Q2

REPORT INFORMATION
  Report Type: 
  Country: None (occurrence: None)
  Receive Date: 20060512
  Receipt Date: 20060505
  Transmission Date: 20061013
  Serious: Yes (Death)
  Sender: FDA-Public Use
  Company Number: US-JNJFOC-20051003160

PATIENT
  Age: 15 Year
  Sex: Male
  Weight: 38.9 kg

DRUGS (4)
  1. REMICADE [Suspect]
     Indication: CROHN'S DISEASE
     Dosage: PATIENT RECEIVED 13 TREATMENTS.
     Route: 042
  2. MERCAPTOPURINE [Concomitant]
  3. PREDNISONE TAB [Concomitant]
  4. IMURAN [Concomitant]

REACTIONS (1)
  - T-CELL LYMPHOMA [None]
